FAERS Safety Report 20016724 (Version 1)
Quarter: 2021Q4

REPORT INFORMATION
  Report Type: Spontaneous
  Country: US (occurrence: None)
  Receive Date: 20211104
  Receipt Date: 20211104
  Transmission Date: 20220303
  Serious: No
  Sender: FDA-Public Use
  Company Number: None

PATIENT
  Age: 72 Year
  Sex: Female
  Weight: 61.23 kg

DRUGS (2)
  1. FORTEO [Suspect]
     Active Substance: TERIPARATIDE
     Indication: Senile osteoporosis
     Dosage: FREQUENCY : DAILY;?
     Route: 058
     Dates: start: 201911
  2. FORTEO [Suspect]
     Active Substance: TERIPARATIDE
     Indication: Bone disorder

REACTIONS (3)
  - Urinary tract infection [None]
  - Renal disorder [None]
  - Blood sodium decreased [None]
